FAERS Safety Report 8541315-5 (Version None)
Quarter: 2012Q3

REPORT INFORMATION
  Report Type: 
  Country: None (occurrence: None)
  Receive Date: 20120716
  Receipt Date: 20120705
  Transmission Date: 20120928
  Serious: Yes (Death, Hospitalization)
  Sender: FDA-Public Use
  Company Number: UTC-020561

PATIENT
  Age: 83 Year
  Sex: Male
  Weight: 54.55 kg

DRUGS (2)
  1. REMODULIN [Suspect]
     Indication: PULMONARY ARTERIAL HYPERTENSION
     Dosage: 18.72 UG/KG (0.013 UG/KG, 1 IN 1 MIN), INTRAVENOUS
     Route: 042
     Dates: start: 20051006
  2. ASPIRIN [Concomitant]

REACTIONS (1)
  - FLUID OVERLOAD [None]
